FAERS Safety Report 7339300-4 (Version None)
Quarter: 2011Q1

REPORT INFORMATION
  Report Type: 
  Country: None (occurrence: None)
  Receive Date: 20110308
  Receipt Date: 20110225
  Transmission Date: 20110831
  Serious: Yes (Hospitalization)
  Sender: FDA-Public Use
  Company Number: KR-JNJFOC-20080303135

PATIENT
  Sex: Male
  Weight: 73 kg

DRUGS (30)
  1. METHOTREXATE [Suspect]
     Indication: RHEUMATOID ARTHRITIS
     Route: 048
  2. GOLIMUMAB [Suspect]
     Route: 058
  3. GOLIMUMAB [Suspect]
     Route: 058
  4. GOLIMUMAB [Suspect]
     Route: 058
  5. METHOTREXATE [Suspect]
     Route: 048
  6. GLIMEPIRIDE [Concomitant]
     Route: 048
  7. GOLIMUMAB [Suspect]
     Route: 058
  8. GOLIMUMAB [Suspect]
     Route: 058
  9. METHOTREXATE [Suspect]
     Route: 048
  10. FOLIC ACID [Concomitant]
     Route: 048
  11. GOLIMUMAB [Suspect]
     Indication: RHEUMATOID ARTHRITIS
     Route: 058
  12. GOLIMUMAB [Suspect]
     Route: 058
  13. PREDNISOLONE [Concomitant]
     Route: 048
  14. GOLIMUMAB [Suspect]
     Route: 058
  15. GOLIMUMAB [Suspect]
     Route: 058
  16. GOLIMUMAB [Suspect]
     Route: 058
  17. GOLIMUMAB [Suspect]
     Route: 058
  18. REBAMIPIDE [Concomitant]
     Route: 048
  19. GOLIMUMAB [Suspect]
     Route: 058
  20. METHOTREXATE [Suspect]
     Route: 048
  21. METHOTREXATE [Suspect]
     Route: 048
  22. ACETAMINOPHEN AND TRAMADOL HCL [Suspect]
     Route: 048
  23. GOLIMUMAB [Suspect]
     Route: 058
  24. METHOTREXATE [Suspect]
     Route: 048
  25. METHOTREXATE [Suspect]
     Route: 048
  26. GOLIMUMAB [Suspect]
     Route: 058
  27. GOLIMUMAB [Suspect]
     Route: 058
  28. GOLIMUMAB [Suspect]
     Route: 058
  29. GOLIMUMAB [Suspect]
     Route: 058
  30. ACECLOFENAC [Concomitant]
     Route: 048

REACTIONS (2)
  - PNEUMONIA [None]
  - LATENT TUBERCULOSIS [None]
